FAERS Safety Report 14566974 (Version 5)
Quarter: 2018Q2

REPORT INFORMATION
  Report Type: Spontaneous
  Country: FR (occurrence: FR)
  Receive Date: 20180223
  Receipt Date: 20180411
  Transmission Date: 20180711
  Serious: No
  Sender: FDA-Public Use
  Company Number: FR-009507513-1802FRA010898

PATIENT
  Age: 54 Year
  Sex: Male
  Weight: 91 kg

DRUGS (12)
  1. PERMIXON [Suspect]
     Active Substance: HERBALS\SAW PALMETTO
     Indication: BENIGN PROSTATIC HYPERPLASIA
     Dosage: 320 MG, DAILY
     Route: 048
     Dates: start: 20180205
  2. DOLIPRANE [Concomitant]
     Active Substance: ACETAMINOPHEN
     Indication: PRODUCT USED FOR UNKNOWN INDICATION
  3. VELMETIA [Suspect]
     Active Substance: METFORMIN\SITAGLIPTIN
     Indication: DIABETES MELLITUS
     Dosage: STARTED MORE THAN 6 MONTHS PRIOR TO THE REPORT TIME
     Route: 048
  4. XELEVIA [Suspect]
     Active Substance: SITAGLIPTIN PHOSPHATE
     Indication: DIABETES MELLITUS
     Dosage: STARTED MORE  THAN 6 MONTHS PRIOR TO THE REPORT TIME (100 MG)
     Route: 048
  5. CEBUTID [Concomitant]
     Active Substance: FLURBIPROFEN
     Indication: PRODUCT USED FOR UNKNOWN INDICATION
     Dosage: 200 MG OCASSIONALLY
     Route: 065
  6. COVERSYL (PERINDOPRIL ERBUMINE) [Concomitant]
     Active Substance: PERINDOPRIL ERBUMINE
     Indication: PRODUCT USED FOR UNKNOWN INDICATION
     Dosage: 5 MG, UNK
     Dates: start: 201711
  7. OMEPRAZOLE MAGNESIUM. [Concomitant]
     Active Substance: OMEPRAZOLE MAGNESIUM
     Indication: PRODUCT USED FOR UNKNOWN INDICATION
     Dosage: UNK
     Dates: start: 201801
  8. PREDNISOLONE. [Concomitant]
     Active Substance: PREDNISOLONE
     Indication: PRODUCT USED FOR UNKNOWN INDICATION
     Dosage: 80 MG DAILY FOR 5 DAYS
     Route: 048
     Dates: start: 201712
  9. AUGMENTIN [Concomitant]
     Active Substance: AMOXICILLIN\CLAVULANATE POTASSIUM
     Indication: PRODUCT USED FOR UNKNOWN INDICATION
     Dosage: DURING ABOUT 5 DAYS
     Route: 065
     Dates: start: 201712
  10. MAALOX (ALUMINUM HYDROXIDE (+) MAGNESIUM HYDROXIDE) [Concomitant]
     Active Substance: ALUMINUM HYDROXIDE\MAGNESIUM HYDROXIDE
     Indication: PRODUCT USED FOR UNKNOWN INDICATION
  11. LACTEOL FORT [Concomitant]
     Indication: PRODUCT USED FOR UNKNOWN INDICATION
  12. AMOXICILLIN. [Concomitant]
     Active Substance: AMOXICILLIN
     Indication: PRODUCT USED FOR UNKNOWN INDICATION
     Dosage: 3 DF DAILY FOR SIX DAYS
     Dates: start: 20180202

REACTIONS (2)
  - Flatulence [Unknown]
  - Blood glucose increased [Recovered/Resolved]
